FAERS Safety Report 9144780 (Version 2)
Quarter: 2013Q4

REPORT INFORMATION
  Report Type: Report from Study
  Country: US (occurrence: US)
  Receive Date: 20130306
  Receipt Date: 20131031
  Transmission Date: 20140711
  Serious: Yes (Hospitalization)
  Sender: FDA-Public Use
  Company Number: US-BRISTOL-MYERS SQUIBB COMPANY-14292676

PATIENT
  Age: 83 Year
  Sex: Female

DRUGS (6)
  1. IPILIMUMAB [Suspect]
     Indication: MALIGNANT MELANOMA
     Dosage: CYC 1: 25JUN08.
     Route: 042
     Dates: start: 20080625, end: 20080716
  2. LESCOL [Concomitant]
  3. EVISTA [Concomitant]
  4. SYNTHROID [Concomitant]
  5. XALATAN [Concomitant]
  6. ASPIRIN [Concomitant]

REACTIONS (3)
  - Leukocytosis [Not Recovered/Not Resolved]
  - Diverticulitis [Recovered/Resolved]
  - Inappropriate antidiuretic hormone secretion [Recovered/Resolved]
